FAERS Safety Report 16201278 (Version 1)
Quarter: 2019Q2

REPORT INFORMATION
  Report Type: Spontaneous
  Country: US (occurrence: US)
  Receive Date: 20190416
  Receipt Date: 20190416
  Transmission Date: 20190711
  Serious: No
  Sender: FDA-Public Use
  Company Number: US-ASTRAZENECA-2019SE45607

PATIENT
  Age: 69 Year
  Sex: Female
  Weight: 137 kg

DRUGS (2)
  1. HUMALOG [Concomitant]
     Active Substance: INSULIN LISPRO
     Indication: DIABETES MELLITUS
  2. BYDUREON [Suspect]
     Active Substance: EXENATIDE
     Indication: DIABETES MELLITUS
     Route: 058
     Dates: start: 2016

REACTIONS (4)
  - Intentional device misuse [Unknown]
  - Respiratory tract infection [Recovered/Resolved]
  - Blood glucose abnormal [Unknown]
  - Device malfunction [Unknown]

NARRATIVE: CASE EVENT DATE: 201903
